FAERS Safety Report 18729729 (Version 1)
Quarter: 2021Q1

REPORT INFORMATION
  Report Type: Spontaneous
  Country: US (occurrence: US)
  Receive Date: 20210112
  Receipt Date: 20210112
  Transmission Date: 20210419
  Serious: Yes (Death, Life-Threatening, Hospitalization)
  Sender: FDA-Public Use
  Company Number: None

PATIENT
  Age: 64 Year
  Sex: Male
  Weight: 109.1 kg

DRUGS (11)
  1. AMLODIPINE 10 MG DAILY [Concomitant]
     Dates: start: 20210106, end: 20210106
  2. BAMLANIVIMAB. [Suspect]
     Active Substance: BAMLANIVIMAB
     Indication: COVID-19
     Dosage: ?          OTHER FREQUENCY:ONCE;?
     Route: 042
     Dates: start: 20210105, end: 20210105
  3. ONDANSETRON 4 MG IV Q4H PRN NAUSEA [Concomitant]
     Dates: start: 20210106, end: 20210106
  4. POTASSIUM CHLORIDE 60 PO ONCE [Concomitant]
     Dates: start: 20210105, end: 20210105
  5. 0.9% SODIUM CHLORIDE 1000 ML [Concomitant]
     Dates: start: 20210105, end: 20210105
  6. CEFTRIAXONE 1 G IV Q24H [Concomitant]
     Dates: start: 20210106, end: 20210106
  7. ENOXAPARIN 100 MG SUBCUT Q12H [Concomitant]
     Dates: start: 20210106, end: 20210106
  8. DEXAMETHASONE 6 MG IV DAILY [Concomitant]
     Dates: start: 20210106, end: 20210106
  9. METOPROLOL SUCCINATE 25 MG DAILY [Concomitant]
     Dates: start: 20210106, end: 20210106
  10. BENZONATATE 100 MG QID PRN COUGH [Concomitant]
     Dates: start: 20210106, end: 20210106
  11. INSULIN ASPART PRN [Concomitant]
     Dates: start: 20210106, end: 20210106

REACTIONS (20)
  - Blood pressure systolic decreased [None]
  - Lethargy [None]
  - Unresponsive to stimuli [None]
  - Deep vein thrombosis [None]
  - Bradycardia [None]
  - Pulse absent [None]
  - Pulmonary haemorrhage [None]
  - COVID-19 [None]
  - Diarrhoea [None]
  - Faeces discoloured [None]
  - Blood creatinine increased [None]
  - Use of accessory respiratory muscles [None]
  - Oxygen saturation decreased [None]
  - Mental status changes [None]
  - Oedema peripheral [None]
  - Hypopnoea [None]
  - Acute kidney injury [None]
  - Dehydration [None]
  - Blood sodium decreased [None]
  - Haematochezia [None]

NARRATIVE: CASE EVENT DATE: 20210105
